FAERS Safety Report 8518134-9 (Version None)
Quarter: 2012Q3

REPORT INFORMATION
  Report Type: 
  Country: None (occurrence: None)
  Receive Date: 20120718
  Receipt Date: 20120710
  Transmission Date: 20120928
  Serious: Yes (Other)
  Sender: FDA-Public Use
  Company Number: US-ASTRAZENECA-2012SE47558

PATIENT
  Age: 59 Year
  Sex: Male

DRUGS (4)
  1. NEXIUM [Suspect]
     Route: 048
  2. NORVASC [Concomitant]
  3. FAMITIDINE [Concomitant]
  4. LYRICA [Concomitant]

REACTIONS (3)
  - VOMITING [None]
  - ARTHRITIS [None]
  - RENAL FAILURE [None]
